FAERS Safety Report 7736898-9 (Version None)
Quarter: 2011Q3

REPORT INFORMATION
  Report Type: 
  Country: None (occurrence: None)
  Receive Date: 20110908
  Receipt Date: 20110830
  Transmission Date: 20111222
  Serious: Yes (Other)
  Sender: FDA-Public Use
  Company Number: PHFR2010IE02029

PATIENT
  Sex: Male
  Weight: 86.6 kg

DRUGS (10)
  1. CLOZAPINE [Suspect]
     Dosage: 750 MG, QD
     Route: 048
     Dates: start: 20090408
  2. AMISULPRIDE [Suspect]
  3. HALOPERIDOL [Concomitant]
     Dosage: 5 MG, TID
  4. VALPROATE SODIUM [Concomitant]
  5. OLANZAPINE [Concomitant]
  6. CLOZAPINE [Suspect]
     Indication: SCHIZOPHRENIA, PARANOID TYPE
     Dosage: 900 MG, QD
     Route: 048
     Dates: start: 20090408
  7. IMMUNOGLOBULINS [Concomitant]
  8. KEPPRA [Suspect]
     Indication: CONVULSION
     Dosage: 1500 MG, BID
     Dates: start: 20090101
  9. RISPERIDONE [Concomitant]
  10. QUETIAPINE [Concomitant]

REACTIONS (8)
  - MEAN CELL HAEMOGLOBIN CONCENTRATION [None]
  - THROMBOCYTOPENIA [None]
  - METABOLIC DISORDER [None]
  - GRAND MAL CONVULSION [None]
  - MYOCLONUS [None]
  - DRUG INEFFECTIVE [None]
  - DYSTONIA [None]
  - PLATELET COUNT DECREASED [None]
